FAERS Safety Report 23836993 (Version 1)
Quarter: 2024Q2

REPORT INFORMATION
  Report Type: Spontaneous
  Country: FR (occurrence: FR)
  Receive Date: 20240509
  Receipt Date: 20240509
  Transmission Date: 20240715
  Serious: Yes (Other)
  Sender: FDA-Public Use
  Company Number: None

PATIENT
  Age: 3 Year
  Sex: Male
  Weight: 15 kg

DRUGS (12)
  1. ELEXACAFTOR\IVACAFTOR\TEZACAFTOR [Suspect]
     Active Substance: ELEXACAFTOR\IVACAFTOR\TEZACAFTOR
     Indication: Cystic fibrosis
     Dosage: 60 MG IVACAFTOR/ 40 MG TEZACAFTOR/ 80 MG ELEXACAFTOR, 1 SACHET PER DAY
     Route: 048
     Dates: start: 20231128, end: 20240319
  2. ZITHROMAX [Concomitant]
     Active Substance: AZITHROMYCIN DIHYDRATE
     Dosage: ONE DOSE ACCORDING TO WEIGHT THREE TIMES PER WEEK
  3. PULMOZYME [Concomitant]
     Active Substance: DORNASE ALFA
     Dosage: ONE AMPOULE (THREE TIMES PER WEEK) NEBULIZED FOR 10 MINUTES
     Route: 055
  4. SINGULAIR [Concomitant]
     Active Substance: MONTELUKAST SODIUM
     Dosage: EVERY EVENING
     Dates: end: 20240330
  5. POLYETHYLENE GLYCOL 4000 [Concomitant]
     Active Substance: POLYETHYLENE GLYCOL 4000
     Dosage: TWO SACHETS MORNING AND EVENING, THREE IF NEEDED
  6. ATROVENT [Concomitant]
     Active Substance: IPRATROPIUM BROMIDE
     Dosage: MORNING AND EVENING
     Route: 055
  7. ALBUTEROL [Concomitant]
     Active Substance: ALBUTEROL
     Dosage: SIX PUFFS X 4-6/DAY
  8. CREON [Concomitant]
     Active Substance: PANCRELIPASE AMYLASE\PANCRELIPASE LIPASE\PANCRELIPASE PROTEASE
  9. CHOLECALCIFEROL [Concomitant]
     Active Substance: CHOLECALCIFEROL
     Dosage: ONE AMPOULE, ONCE EVERY THREE MONTHS
  10. SERETIDE [Concomitant]
     Active Substance: FLUTICASONE PROPIONATE\SALMETEROL XINAFOATE
     Dosage: 125 ?G, TWO PUFFS MORNING AND EVENING USING INHALER
  11. URSODIOL [Concomitant]
     Active Substance: URSODIOL
  12. MINERALS\VITAMINS [Concomitant]
     Active Substance: MINERALS\VITAMINS

REACTIONS (3)
  - Hepatitis [Recovering/Resolving]
  - Anger [Recovered/Resolved]
  - Transaminases increased [Recovering/Resolving]

NARRATIVE: CASE EVENT DATE: 20231229
